FAERS Safety Report 16559144 (Version 1)
Quarter: 2019Q3

REPORT INFORMATION
  Report Type: Spontaneous
  Country: US (occurrence: US)
  Receive Date: 20190530
  Receipt Date: 20190530
  Transmission Date: 20191004
  Serious: No
  Sender: FDA-Public Use
  Company Number: None

PATIENT

DRUGS (4)
  1. PROCRIT [Suspect]
     Active Substance: ERYTHROPOIETIN
     Dosage: ?          OTHER DOSE:20,000 UNITS/ML-VI;?
  2. RETACRIT [Suspect]
     Active Substance: EPOETIN ALFA-EPBX
     Dosage: ?          OTHER DOSE:10,000 UNITS/ML;?
  3. PROCRIT [Suspect]
     Active Substance: ERYTHROPOIETIN
  4. RETACRIT [Suspect]
     Active Substance: EPOETIN ALFA-EPBX
     Dosage: ?          OTHER DOSE:40,000 UNITS/ML;?

REACTIONS (2)
  - Wrong product administered [None]
  - Product appearance confusion [None]

NARRATIVE: CASE EVENT DATE: 2019
